FAERS Safety Report 7371487-X (Version None)
Quarter: 2011Q1

REPORT INFORMATION
  Report Type: 
  Country: None (occurrence: None)
  Receive Date: 20110324
  Receipt Date: 20110323
  Transmission Date: 20110831
  Serious: Yes (Other)
  Sender: FDA-Public Use
  Company Number: US-PFIZER INC-2011064643

PATIENT
  Sex: Female
  Weight: 77.098 kg

DRUGS (2)
  1. CHANTIX [Suspect]
     Indication: SMOKING CESSATION THERAPY
     Dosage: 0.5 MG, 1X/DAY
     Route: 048
     Dates: start: 20110201, end: 20110301
  2. GERITOL [Concomitant]
     Indication: VITAMIN SUPPLEMENTATION
     Dosage: DAILY
     Route: 048
     Dates: start: 20100101

REACTIONS (5)
  - FATIGUE [None]
  - SOMNOLENCE [None]
  - DIZZINESS [None]
  - ABNORMAL DREAMS [None]
  - BLOOD PRESSURE INCREASED [None]
